FAERS Safety Report 10224254 (Version 2)
Quarter: 2014Q2

REPORT INFORMATION
  Report Type: Report from Study
  Country: PH (occurrence: PH)
  Receive Date: 20140609
  Receipt Date: 20140609
  Transmission Date: 20141212
  Serious: No
  Sender: FDA-Public Use
  Company Number: PHHY2014PH057497

PATIENT
  Sex: Female

DRUGS (1)
  1. TASIGNA [Suspect]
     Dosage: 800 MG, DAILY
     Route: 048
     Dates: start: 20120410

REACTIONS (8)
  - Hair colour changes [Not Recovered/Not Resolved]
  - Chest discomfort [Unknown]
  - Dyspnoea [Unknown]
  - Pain [Unknown]
  - Constipation [Unknown]
  - Rash generalised [Recovering/Resolving]
  - Pruritus [Not Recovered/Not Resolved]
  - Alopecia [Unknown]
